FAERS Safety Report 10442768 (Version 1)
Quarter: 2014Q3

REPORT INFORMATION
  Report Type: Spontaneous
  Country: US (occurrence: US)
  Receive Date: 20140909
  Receipt Date: 20140909
  Transmission Date: 20150326
  Serious: Yes (Other)
  Sender: FDA-Public Use
  Company Number: US-TAKEDA-2014MPI002368

PATIENT
  Age: 55 Year
  Sex: Female
  Weight: 91.16 kg

DRUGS (1)
  1. VELCADE [Suspect]
     Active Substance: BORTEZOMIB
     Indication: PLASMA CELL MYELOMA
     Dosage: 1/WEEK
     Route: 058

REACTIONS (3)
  - Eye movement disorder [Not Recovered/Not Resolved]
  - Eye swelling [Recovered/Resolved]
  - Visual impairment [Not Recovered/Not Resolved]
